FAERS Safety Report 16647684 (Version 6)
Quarter: 2020Q3

REPORT INFORMATION
  Report Type: Spontaneous
  Country: AT (occurrence: AT)
  Receive Date: 20190730
  Receipt Date: 20191014
  Transmission Date: 20201105
  Serious: Yes (Death, Life-Threatening, Hospitalization, Other)
  Sender: FDA-Public Use
  Company Number: AT-PFIZER INC-2019325696

PATIENT
  Age: 31 Year
  Sex: Male

DRUGS (15)
  1. ALDACTONE [Suspect]
     Active Substance: SPIRONOLACTONE
     Indication: INTENTIONAL PRODUCT MISUSE
  2. LASIX [Suspect]
     Active Substance: FUROSEMIDE
     Indication: INTENTIONAL PRODUCT MISUSE
  3. STROMBA [Suspect]
     Active Substance: STANOZOLOL
     Dosage: 80 DF, DAILY (50 ? 80 TABLETS)
     Route: 065
  4. MASTERON [Suspect]
     Active Substance: DROMOSTANOLONE PROPIONATE
     Indication: INTENTIONAL PRODUCT MISUSE
     Dosage: 2 DF, DAILY (2 INJECTIONS)
  5. CLENBUTEROL [Suspect]
     Active Substance: CLENBUTEROL
     Indication: INTENTIONAL PRODUCT MISUSE
  6. TESTOVIRON [TESTOSTERONE PROPIONATE] [Suspect]
     Active Substance: TESTOSTERONE PROPIONATE
     Indication: INTENTIONAL PRODUCT MISUSE
     Dosage: UNK
  7. STROMBA [Suspect]
     Active Substance: STANOZOLOL
     Indication: INTENTIONAL PRODUCT MISUSE
     Dosage: 80 DF, DAILY
  8. WINSTROL [Suspect]
     Active Substance: STANOZOLOL
     Indication: INTENTIONAL PRODUCT MISUSE
     Dosage: 2 DF, UNK (2 INJECTIONS)
  9. VALIUM [Suspect]
     Active Substance: DIAZEPAM
     Indication: INTENTIONAL PRODUCT MISUSE
  10. ASPIRIN. [Suspect]
     Active Substance: ASPIRIN
     Indication: INTENTIONAL PRODUCT MISUSE
  11. SOMATROPIN. [Suspect]
     Active Substance: SOMATROPIN
     Indication: INTENTIONAL PRODUCT MISUSE
     Dosage: 24 IU, DAILY
  12. CAPTAGON [Suspect]
     Active Substance: FENETHYLLINE HYDROCHLORIDE
     Indication: INTENTIONAL PRODUCT MISUSE
  13. HALOTESTIN [Suspect]
     Active Substance: FLUOXYMESTERONE
     Indication: INTENTIONAL PRODUCT MISUSE
     Dosage: 40 DF, DAILY
  14. PARABOLAN [Suspect]
     Active Substance: TRENBOLONE
     Indication: INTENTIONAL PRODUCT MISUSE
     Dosage: UNK
  15. EPHEDRINE. [Suspect]
     Active Substance: EPHEDRINE
     Indication: INTENTIONAL PRODUCT MISUSE

REACTIONS (4)
  - Toxicity to various agents [Fatal]
  - Intentional product misuse [Fatal]
  - Multiple organ dysfunction syndrome [Fatal]
  - Hepatic neoplasm [Fatal]
